FAERS Safety Report 5500563-9 (Version None)
Quarter: 2007Q4

REPORT INFORMATION
  Report Type: 
  Country: None (occurrence: None)
  Receive Date: 20071029
  Receipt Date: 20071018
  Transmission Date: 20080405
  Serious: Yes (Other)
  Sender: FDA-Public Use
  Company Number: NL-JNJFOC-20071005332

PATIENT
  Sex: Female

DRUGS (5)
  1. DURAGESIC-100 [Suspect]
     Indication: BACK PAIN
     Route: 062
  2. ACENOCOUMAROL [Interacting]
     Indication: ATRIAL FIBRILLATION
     Route: 065
  3. CORDARONE [Concomitant]
     Route: 065
  4. PAROXETINUM [Concomitant]
     Route: 065
  5. MADOPAR [Concomitant]
     Route: 065

REACTIONS (2)
  - DRUG INTERACTION [None]
  - INTERNATIONAL NORMALISED RATIO INCREASED [None]
